FAERS Safety Report 4960333-7 (Version None)
Quarter: 2006Q2

REPORT INFORMATION
  Report Type: 
  Country: None (occurrence: None)
  Receive Date: 20060403
  Receipt Date: 20060127
  Transmission Date: 20061013
  Serious: Yes (Hospitalization)
  Sender: FDA-Public Use
  Company Number: CN-BRISTOL-MYERS SQUIBB COMPANY-13272943

PATIENT
  Age: 73 Year
  Sex: Male
  Weight: 65 kg

DRUGS (4)
  1. APROVEL [Suspect]
     Indication: HYPERTENSION
     Route: 048
     Dates: start: 20060116, end: 20060116
  2. PERINDOPRIL [Concomitant]
     Indication: HYPERTENSION
     Route: 048
     Dates: start: 20050116
  3. AMLODIPINE [Concomitant]
     Indication: HYPERTENSION
     Route: 048
     Dates: start: 20050116
  4. ALLOPURINOL [Concomitant]
     Route: 048

REACTIONS (1)
  - ANAPHYLACTIC SHOCK [None]
